FAERS Safety Report 7744769-7 (Version None)
Quarter: 2011Q3

REPORT INFORMATION
  Report Type: 
  Country: None (occurrence: None)
  Receive Date: 20110912
  Receipt Date: 20110912
  Transmission Date: 20111222
  Serious: Yes (Death)
  Sender: FDA-Public Use
  Company Number: None

PATIENT
  Age: 21 Year
  Sex: Male
  Weight: 58.967 kg

DRUGS (2)
  1. LORAZEPAM [Suspect]
     Indication: SLEEP DISORDER
     Dosage: 1
     Route: 048
     Dates: start: 20110228, end: 20110430
  2. METHYLDOPA [Concomitant]
     Dosage: 3 X'S
     Route: 048

REACTIONS (4)
  - DEPRESSION [None]
  - PRURITUS [None]
  - PARTNER STRESS [None]
  - IRRITABILITY [None]
